FAERS Safety Report 7713939-6 (Version None)
Quarter: 2011Q3

REPORT INFORMATION
  Report Type: 
  Country: None (occurrence: None)
  Receive Date: 20110826
  Receipt Date: 20110817
  Transmission Date: 20111222
  Serious: Yes (Other)
  Sender: FDA-Public Use
  Company Number: IE-AMGEN-IRLSP2011041800

PATIENT
  Age: 58 Year
  Sex: Female

DRUGS (1)
  1. PROLIA [Suspect]
     Indication: PRODUCT USED FOR UNKNOWN INDICATION
     Dosage: UNK
     Route: 058
     Dates: start: 20110719

REACTIONS (5)
  - HERPES ZOSTER [None]
  - OROPHARYNGEAL PAIN [None]
  - RESPIRATORY TRACT INFECTION [None]
  - CHILLS [None]
  - LETHARGY [None]
